FAERS Safety Report 5971282-X (Version None)
Quarter: 2008Q4

REPORT INFORMATION
  Report Type: 
  Country: None (occurrence: None)
  Receive Date: 20081128
  Receipt Date: 20081121
  Transmission Date: 20090506
  Serious: Yes (Hospitalization)
  Sender: FDA-Public Use
  Company Number: AU-PFIZER INC-2008099283

PATIENT
  Sex: Female

DRUGS (2)
  1. ZOLOFT [Suspect]
     Indication: DEPRESSION
  2. OXAZEPAM [Interacting]
     Indication: INSOMNIA
     Dates: start: 20080301

REACTIONS (7)
  - ANXIETY [None]
  - DRUG INTERACTION [None]
  - DYSPNOEA [None]
  - HYPOAESTHESIA [None]
  - LIP SWELLING [None]
  - RASH [None]
  - SEROTONIN SYNDROME [None]
